FAERS Safety Report 17901657 (Version 1)
Quarter: 2020Q2

REPORT INFORMATION
  Report Type: Spontaneous
  Country: US (occurrence: US)
  Receive Date: 20200616
  Receipt Date: 20200616
  Transmission Date: 20200714
  Serious: Yes (Death)
  Sender: FDA-Public Use
  Company Number: None

PATIENT
  Age: 93 Year
  Sex: Female
  Weight: 45 kg

DRUGS (1)
  1. REMDESIVIR UNDER EMERGENCY USE AUTHORIZATION (EUA) [Suspect]
     Active Substance: REMDESIVIR
     Indication: COVID-19
     Route: 042
     Dates: start: 20200602, end: 20200606

REACTIONS (6)
  - Pulmonary embolism [None]
  - Alanine aminotransferase increased [None]
  - Atrial fibrillation [None]
  - Glomerular filtration rate decreased [None]
  - Aspartate aminotransferase increased [None]
  - Cardio-respiratory arrest [None]

NARRATIVE: CASE EVENT DATE: 20200614
